FAERS Safety Report 3631798 (Version 8)
Quarter: 2020Q3

REPORT INFORMATION
  Report Type: Spontaneous
  Country: FR (occurrence: None)
  Receive Date: 20010405
  Receipt Date: 20020501
  Transmission Date: 20201104
  Serious: Yes (Disabling)
  Sender: FDA-Public Use
  Company Number: 257518

PATIENT
  Age: 38 Year
  Sex: Female
  Weight: 43 kg

DRUGS (12)
  1. MOPRAL (OMEPRAZOLE) [Concomitant]
     Active Substance: OMEPRAZOLE SODIUM
  2. PROGRAF [Suspect]
     Active Substance: TACROLIMUS
     Dosage: ORAL
     Route: 048
     Dates: start: 20001013, end: 20010925
  3. SOLUPRED (PREDNISOLONE SODIUM METAZOATE) [Suspect]
     Active Substance: PREDNISOLONE SODIUM METAZOATE
     Dosage: ORAL
     Route: 048
  4. TOPALGIC (SUPROFEN OR TRAMADOL HYDROCHLORIDE) [Concomitant]
  5. AZATHIOPRINE. [Suspect]
     Active Substance: AZATHIOPRINE
     Dosage: ORAL
     Route: 048
     Dates: start: 19990815, end: 20010226
  6. ASPEGIC [ACETYLSALICYLATE LYSINE] [Concomitant]
     Active Substance: ASPIRIN DL-LYSINE
  7. FANSIDAR [Suspect]
     Active Substance: PYRIMETHAMINE\SULFADOXINE
     Indication: PROPHYLAXIS
     Dosage: 2 DOSE FORM    15 PER MONTH ORAL
     Route: 048
     Dates: start: 19991015
  8. ETHINYL ESTRADIOL\GESTODENE. [Suspect]
     Active Substance: ETHINYL ESTRADIOL\GESTODENE
     Indication: DYSMENORRHOEA
     Dosage: ORAL
     Route: 048
     Dates: start: 20000515, end: 20010225
  9. TILDIEM [Suspect]
     Active Substance: DILTIAZEM HYDROCHLORIDE
     Dosage: ORAL
     Route: 048
     Dates: start: 19990813
  10. NEORAL [Concomitant]
     Active Substance: CYCLOSPORINE
  11. NIFEDIPINE. [Concomitant]
     Active Substance: NIFEDIPINE
  12. TEMESTA (LORAZEPAM) [Concomitant]

REACTIONS (7)
  - Biopsy kidney abnormal [None]
  - Graft thrombosis [None]
  - Hirsutism [None]
  - Thrombotic microangiopathy [None]
  - Renal failure [None]
  - Anaemia [None]
  - Renal cortical necrosis [None]
